FAERS Safety Report 14317539 (Version 5)
Quarter: 2019Q2

REPORT INFORMATION
  Report Type: Spontaneous
  Country: IN (occurrence: IN)
  Receive Date: 20171222
  Receipt Date: 20190625
  Transmission Date: 20190711
  Serious: Yes (Hospitalization)
  Sender: FDA-Public Use
  Company Number: IN-INDIVIOR LIMITED-INDV-107011-2017

PATIENT
  Age: 29 Year
  Sex: Male

DRUGS (3)
  1. BUPRENORPHINE/NALOXONE BRAND UNSPECIFIED [Suspect]
     Active Substance: BUPRENORPHINE\NALOXONE
     Dosage: 8MG PER DAY
     Route: 060
  2. BUPRENORPHINE/NALOXONE BRAND UNSPECIFIED [Suspect]
     Active Substance: BUPRENORPHINE\NALOXONE
     Indication: DRUG DEPENDENCE
     Dosage: 2MG PER DAY
     Route: 060
  3. BUPRENORPHINE/NALOXONE BRAND UNSPECIFIED [Suspect]
     Active Substance: BUPRENORPHINE\NALOXONE
     Dosage: 6MG PER DAY
     Route: 060

REACTIONS (4)
  - Delirium [Recovered/Resolved]
  - Drug withdrawal syndrome [Unknown]
  - Behaviour disorder [Unknown]
  - Mental disorder [Unknown]
